FAERS Safety Report 7820376 (Version 3)
Quarter: 2014Q4

REPORT INFORMATION
  Report Type: Report from Study
  Country: TW (occurrence: TW)
  Receive Date: 20110221
  Receipt Date: 20141011
  Transmission Date: 20150529
  Serious: Yes (Death, Hospitalization, Other)
  Sender: FDA-Public Use
  Company Number: PHHY2011TW12347

PATIENT
  Age: 54 Year
  Sex: Female
  Weight: 50 kg

DRUGS (2)
  1. NEORAL [Suspect]
     Active Substance: CYCLOSPORINE
     Indication: RENAL TRANSPLANT
     Dosage: 100 MG, QD
     Route: 048
     Dates: start: 20090525, end: 20100513
  2. NEORAL [Suspect]
     Active Substance: CYCLOSPORINE
     Indication: IMMUNOSUPPRESSION

REACTIONS (16)
  - Hepatic cirrhosis [Fatal]
  - Platelet count decreased [Unknown]
  - Hepatic encephalopathy [Fatal]
  - Hepatitis acute [Unknown]
  - Viral infection [Unknown]
  - Blood sodium decreased [Unknown]
  - Ascites [Fatal]
  - Haemoglobin decreased [Unknown]
  - Blood albumin decreased [Unknown]
  - Jaundice [Fatal]
  - Loss of consciousness [Fatal]
  - Blood urea increased [Unknown]
  - Blood potassium decreased [Unknown]
  - Ammonia increased [Fatal]
  - Blood glucose increased [Unknown]
  - Blood creatinine increased [Unknown]

NARRATIVE: CASE EVENT DATE: 20091209
